FAERS Safety Report 17189576 (Version 2)
Quarter: 2020Q2

REPORT INFORMATION
  Report Type: Report from Study
  Country: US (occurrence: US)
  Receive Date: 20191223
  Receipt Date: 20200403
  Transmission Date: 20200713
  Serious: Yes (Hospitalization)
  Sender: FDA-Public Use
  Company Number: US-UCBSA-2019053690

PATIENT
  Sex: Male

DRUGS (2)
  1. LACOSAMIDE. [Suspect]
     Active Substance: LACOSAMIDE
     Indication: SEIZURE
     Dosage: 100 MG TWICE DAILY AND 200 MG AT NIGHT
  2. KEPPRA XR [Suspect]
     Active Substance: LEVETIRACETAM
     Indication: SEIZURE
     Dosage: 1500 MILLIGRAM, 2X/DAY (BID)

REACTIONS (3)
  - Intentional product misuse [Unknown]
  - Hospitalisation [Unknown]
  - Seizure [Unknown]

NARRATIVE: CASE EVENT DATE: 2019
